FAERS Safety Report 17596981 (Version 1)
Quarter: 2020Q1

REPORT INFORMATION
  Report Type: Report from Study
  Country: None (occurrence: US)
  Receive Date: 20200330
  Receipt Date: 20200330
  Transmission Date: 20200409
  Serious: Yes (Other)
  Sender: FDA-Public Use
  Company Number: US-ABBVIE-20P-163-3340481-00

PATIENT
  Sex: Female

DRUGS (1)
  1. IMBRUVICA [Suspect]
     Active Substance: IBRUTINIB
     Indication: CHRONIC LYMPHOCYTIC LEUKAEMIA
     Route: 048
     Dates: start: 20151208

REACTIONS (5)
  - Diarrhoea [Unknown]
  - Platelet count decreased [Unknown]
  - Pigmentation disorder [Unknown]
  - Skin discolouration [Unknown]
  - Macular degeneration [Unknown]
